FAERS Safety Report 7040212-4 (Version None)
Quarter: 2010Q4

REPORT INFORMATION
  Report Type: 
  Country: None (occurrence: None)
  Receive Date: 20101012
  Receipt Date: 20101001
  Transmission Date: 20110411
  Serious: Yes (Life-Threatening, Other)
  Sender: FDA-Public Use
  Company Number: US-BAXTER-2010BH025359

PATIENT
  Age: 13 Year
  Sex: Male
  Weight: 36 kg

DRUGS (16)
  1. ADVATE [Suspect]
     Indication: PROPHYLAXIS
     Route: 065
     Dates: start: 20070701
  2. ADVATE [Suspect]
     Indication: IMMUNOMODULATORY THERAPY
     Route: 065
     Dates: start: 20070701
  3. ADVATE [Suspect]
     Indication: HAEMORRHAGE
     Route: 065
     Dates: start: 20070701
  4. ADVATE [Suspect]
     Route: 065
     Dates: end: 20091201
  5. ADVATE [Suspect]
     Route: 065
     Dates: end: 20091201
  6. ADVATE [Suspect]
     Route: 065
     Dates: end: 20091201
  7. ADVATE [Suspect]
     Route: 065
     Dates: start: 20100201, end: 20100622
  8. ADVATE [Suspect]
     Route: 065
     Dates: start: 20100201, end: 20100622
  9. ADVATE [Suspect]
     Route: 065
     Dates: start: 20100201, end: 20100622
  10. ADVATE [Suspect]
     Route: 065
     Dates: start: 20091201, end: 20100201
  11. ADVATE [Suspect]
     Route: 065
     Dates: start: 20091201, end: 20100201
  12. ADVATE [Suspect]
     Route: 065
     Dates: start: 20091201, end: 20100201
  13. TESTOSTERONE [Concomitant]
     Indication: BODY HEIGHT BELOW NORMAL
     Route: 030
     Dates: start: 20090701, end: 20100517
  14. AMICAR [Concomitant]
     Indication: PROPHYLAXIS
     Route: 048
  15. AMOXICILLIN [Concomitant]
     Indication: PROPHYLAXIS
     Route: 048
  16. ADDERALL 10 [Concomitant]
     Indication: ATTENTION DEFICIT/HYPERACTIVITY DISORDER
     Route: 048

REACTIONS (1)
  - FACTOR VIII INHIBITION [None]
